FAERS Safety Report 5006591-4 (Version None)
Quarter: 2006Q2

REPORT INFORMATION
  Report Type: 
  Country: None (occurrence: None)
  Receive Date: 20060519
  Receipt Date: 20060116
  Transmission Date: 20061013
  Serious: Yes (Life-Threatening)
  Sender: FDA-Public Use
  Company Number: US-GLAXOSMITHKLINE-A0589431A

PATIENT
  Sex: Female

DRUGS (2)
  1. WELLBUTRIN XL [Suspect]
     Indication: DEPRESSION
     Dosage: 300MG PER DAY
     Route: 048
     Dates: end: 20060116
  2. ZOLOFT [Suspect]
     Dosage: 100MG PER DAY
     Dates: start: 20051227

REACTIONS (6)
  - AURA [None]
  - DRUG INTERACTION [None]
  - GRAND MAL CONVULSION [None]
  - POSTICTAL STATE [None]
  - ROAD TRAFFIC ACCIDENT [None]
  - TONGUE INJURY [None]
